FAERS Safety Report 6233087-4 (Version None)
Quarter: 2009Q2

REPORT INFORMATION
  Report Type: 
  Country: None (occurrence: None)
  Receive Date: 20090616
  Receipt Date: 20090616
  Transmission Date: 20091009
  Serious: No
  Sender: FDA-Public Use
  Company Number: None

PATIENT
  Age: 74 Year
  Sex: Male
  Weight: 74.55 kg

DRUGS (2)
  1. CYCLOPHOSPHAMIDE [Suspect]
     Dosage: 1508 MG EVERY DAY IV
     Route: 042
     Dates: start: 20090304, end: 20090304
  2. VINCRISTINE [Suspect]
     Dosage: 2 MG EVERY DAY IV
     Route: 042
     Dates: start: 20090304, end: 20090304

REACTIONS (3)
  - CHILLS [None]
  - NEUTROPENIA [None]
  - PYREXIA [None]
